FAERS Safety Report 8261903 (Version 22)
Quarter: 2015Q4

REPORT INFORMATION
  Report Type: Spontaneous
  Country: FI (occurrence: FI)
  Receive Date: 20111123
  Receipt Date: 20151223
  Transmission Date: 20160305
  Serious: Yes (Hospitalization, Other)
  Sender: FDA-Public Use
  Company Number: FI-PFIZER INC-2011281290

PATIENT
  Age: 54 Year
  Sex: Female

DRUGS (12)
  1. LIPITOR [Suspect]
     Active Substance: ATORVASTATIN CALCIUM
     Dosage: UNK
     Dates: end: 20111125
  2. RAMIPRIL. [Suspect]
     Active Substance: RAMIPRIL
     Dosage: 5 MG, UNK
     Dates: start: 20030405
  3. LIPITOR [Suspect]
     Active Substance: ATORVASTATIN CALCIUM
     Dosage: 20 MG, DAILY
     Route: 048
     Dates: start: 2004, end: 20060717
  4. COZAAR COMP [Concomitant]
     Active Substance: HYDROCHLOROTHIAZIDE\LOSARTAN POTASSIUM
     Dosage: [HYDROCHLOROTHIAZIDE 50 MG]/[LOSARTAN POTASSIUM 12.5 MG], IN THE MORNING
     Dates: start: 2003
  5. RAMIPRIL. [Suspect]
     Active Substance: RAMIPRIL
     Dosage: UNK
     Dates: end: 20111125
  6. LIPITOR [Suspect]
     Active Substance: ATORVASTATIN CALCIUM
     Dosage: 10 MG, 1X/DAY
     Route: 048
     Dates: start: 201107, end: 20110927
  7. SIMVASTATIN. [Suspect]
     Active Substance: SIMVASTATIN
     Dosage: 20 MG, DAILY
     Route: 065
     Dates: start: 20070515, end: 2007
  8. LIPITOR [Suspect]
     Active Substance: ATORVASTATIN CALCIUM
     Dosage: 10 MG, DAILY
     Route: 048
     Dates: start: 2003, end: 2004
  9. DUACT [Concomitant]
     Active Substance: ACRIVASTINE\PSEUDOEPHEDRINE HYDROCHLORIDE
     Indication: RHINITIS ALLERGIC
     Dosage: OCCASIONALLY
  10. LIPITOR [Suspect]
     Active Substance: ATORVASTATIN CALCIUM
     Dosage: 10 MG, DAILY
     Route: 048
     Dates: start: 20060718, end: 2007
  11. SIMVASTATIN. [Suspect]
     Active Substance: SIMVASTATIN
     Dosage: UNK
     Dates: end: 20111125
  12. NEXIUM [Concomitant]
     Active Substance: ESOMEPRAZOLE MAGNESIUM
     Indication: DYSPEPSIA
     Dosage: 40 MG, OCCASIONALLY

REACTIONS (33)
  - Hepatic enzyme increased [Recovered/Resolved]
  - Rhinitis allergic [Unknown]
  - Toxicity to various agents [Unknown]
  - Pancreatic disorder [Unknown]
  - Constipation [Not Recovered/Not Resolved]
  - Lymph node pain [Not Recovered/Not Resolved]
  - Hepatic steatosis [Not Recovered/Not Resolved]
  - Cholangitis [Not Recovered/Not Resolved]
  - Musculoskeletal pain [Unknown]
  - Hypertension [Unknown]
  - Sinusitis [Unknown]
  - Muscle rupture [Unknown]
  - Synovial rupture [Unknown]
  - Hepatic enzyme increased [Recovered/Resolved]
  - Muscle spasms [Unknown]
  - C-reactive protein increased [Recovered/Resolved]
  - Muscle spasms [Recovered/Resolved]
  - Fatigue [Not Recovered/Not Resolved]
  - Abdominal pain [Not Recovered/Not Resolved]
  - Diaphragmatic disorder [Not Recovered/Not Resolved]
  - Vomiting [Recovered/Resolved]
  - White blood cell count increased [Unknown]
  - Thymus disorder [Unknown]
  - Vomiting [Unknown]
  - Bladder prolapse [Unknown]
  - Chest pain [Unknown]
  - Amylase increased [Not Recovered/Not Resolved]
  - Cardiac disorder [Unknown]
  - Blood cholesterol increased [Unknown]
  - Mobility decreased [Unknown]
  - Pneumonia [Recovered/Resolved]
  - Abdominal pain upper [Not Recovered/Not Resolved]
  - Headache [Unknown]

NARRATIVE: CASE EVENT DATE: 2003
